FAERS Safety Report 16675022 (Version 4)
Quarter: 2020Q2

REPORT INFORMATION
  Report Type: Report from Study
  Country: US (occurrence: US)
  Receive Date: 20190806
  Receipt Date: 20200625
  Transmission Date: 20200713
  Serious: No
  Sender: FDA-Public Use
  Company Number: US-SA-2019SA208930

PATIENT

DRUGS (6)
  1. DUPILUMAB [Suspect]
     Active Substance: DUPILUMAB
     Dosage: 300 MG, QOW
     Route: 058
     Dates: start: 20190613, end: 20200420
  2. EPIPEN [Concomitant]
     Active Substance: EPINEPHRINE
  3. DUPILUMAB [Suspect]
     Active Substance: DUPILUMAB
     Indication: ASTHMA
     Dosage: 600 MG, 1X
     Route: 058
     Dates: start: 20190530, end: 20190530
  4. VENTOLIN HFA [Concomitant]
     Active Substance: ALBUTEROL SULFATE
  5. ATIVAN [Concomitant]
     Active Substance: LORAZEPAM
  6. FLOVENT HFA [Concomitant]
     Active Substance: FLUTICASONE PROPIONATE

REACTIONS (6)
  - Asthma [Not Recovered/Not Resolved]
  - Product use issue [Unknown]
  - Visual impairment [Not Recovered/Not Resolved]
  - Product dose omission [Unknown]
  - Product use in unapproved indication [Unknown]
  - Visual impairment [Not Recovered/Not Resolved]

NARRATIVE: CASE EVENT DATE: 2019
